FAERS Safety Report 14795026 (Version 3)
Quarter: 2018Q3

REPORT INFORMATION
  Report Type: Report from Study
  Country: None (occurrence: US)
  Receive Date: 20180423
  Receipt Date: 20180921
  Transmission Date: 20181010
  Serious: Yes (Death, Hospitalization, Other)
  Sender: FDA-Public Use
  Company Number: US-ABBVIE-18P-163-2328742-00

PATIENT
  Age: 62 Year
  Sex: Female
  Weight: 66.74 kg

DRUGS (9)
  1. FUROSEMIDE. [Concomitant]
     Active Substance: FUROSEMIDE
     Indication: PRODUCT USED FOR UNKNOWN INDICATION
  2. SPIRONOLACTONE. [Concomitant]
     Active Substance: SPIRONOLACTONE
     Indication: HYPERTENSION
  3. LASIX [Concomitant]
     Active Substance: FUROSEMIDE
     Indication: HYPERTENSION
  4. WARFARIN [Concomitant]
     Active Substance: WARFARIN
     Indication: PORTAL VEIN THROMBOSIS
  5. XIFAXAN [Concomitant]
     Active Substance: RIFAXIMIN
     Indication: HEPATIC ENCEPHALOPATHY
  6. COUMADIN [Concomitant]
     Active Substance: WARFARIN SODIUM
     Indication: PORTAL VEIN THROMBOSIS
     Dosage: 1.5 TAB/DAY ON MONDAY, WEDNESDAY AND FRIDAY. 1 TAB/DAY TUESDAY, THURSDAY,SATURDAY, SUNDAY.
     Route: 048
     Dates: start: 20151113, end: 20180307
  7. COUMADIN [Concomitant]
     Active Substance: WARFARIN SODIUM
     Route: 048
     Dates: start: 20180309
  8. MAVYRET [Suspect]
     Active Substance: GLECAPREVIR\PIBRENTASVIR
     Indication: CHRONIC HEPATITIS C
     Route: 048
     Dates: start: 20180306, end: 2018
  9. RIFAXIMIN. [Concomitant]
     Active Substance: RIFAXIMIN
     Indication: PRODUCT USED FOR UNKNOWN INDICATION

REACTIONS (25)
  - Mental status changes [Not Recovered/Not Resolved]
  - Fatigue [Unknown]
  - Blood bilirubin increased [Not Recovered/Not Resolved]
  - Diarrhoea [Unknown]
  - Blood albumin decreased [Unknown]
  - White blood cell count increased [Unknown]
  - Sepsis [Fatal]
  - Hypercoagulation [Unknown]
  - Ammonia increased [Not Recovered/Not Resolved]
  - Renal failure [Fatal]
  - Hepatic failure [Fatal]
  - Hepatic encephalopathy [Fatal]
  - Hypoglycaemia [Unknown]
  - Thrombocytopenia [Unknown]
  - International normalised ratio increased [Not Recovered/Not Resolved]
  - Blood lactic acid increased [Unknown]
  - Pneumonia [Fatal]
  - International normalised ratio increased [Recovered/Resolved]
  - Ascites [Not Recovered/Not Resolved]
  - Aphasia [Unknown]
  - Jaundice [Unknown]
  - Haematoma [Unknown]
  - Thrombocytopenia [Not Recovered/Not Resolved]
  - Gastrooesophageal reflux disease [Unknown]
  - Confusional state [Unknown]

NARRATIVE: CASE EVENT DATE: 2018
